FAERS Safety Report 13342075 (Version 2)
Quarter: 2017Q2

REPORT INFORMATION
  Report Type: Report from Study
  Country: JP (occurrence: JP)
  Receive Date: 20170316
  Receipt Date: 20170411
  Transmission Date: 20170830
  Serious: Yes (Death, Hospitalization, Other)
  Sender: FDA-Public Use
  Company Number: JP-GILEAD-2013-0072457

PATIENT
  Age: 72 Year
  Sex: Male
  Weight: 59 kg

DRUGS (21)
  1. DIART [Concomitant]
     Active Substance: AZOSEMIDE
     Indication: HYPERTENSION
     Dosage: UNK
     Route: 048
     Dates: start: 20130219
  2. DIART [Concomitant]
     Active Substance: AZOSEMIDE
     Dosage: UNK
     Dates: start: 20150304
  3. LANSOPRAZOLE. [Concomitant]
     Active Substance: LANSOPRAZOLE
     Indication: GASTROOESOPHAGEAL REFLUX DISEASE
     Dosage: UNK
  4. LANSOPRAZOLE. [Concomitant]
     Active Substance: LANSOPRAZOLE
     Dosage: UNK
     Dates: end: 20161007
  5. LONGES [Concomitant]
     Active Substance: LISINOPRIL
     Indication: HYPERTENSION
     Dosage: UNK
     Route: 048
  6. LONGES [Concomitant]
     Active Substance: LISINOPRIL
     Dosage: UNK
  7. LONGES [Concomitant]
     Active Substance: LISINOPRIL
     Route: 048
  8. DIOVAN [Concomitant]
     Active Substance: VALSARTAN
     Route: 048
  9. FLUITRAN [Concomitant]
     Active Substance: TRICHLORMETHIAZIDE
     Dosage: UNK
     Dates: end: 20150303
  10. AMBRISENTAN [Suspect]
     Active Substance: AMBRISENTAN
     Dosage: 10 MG, QD
     Route: 048
     Dates: start: 20130207, end: 20161007
  11. DIOVAN [Concomitant]
     Active Substance: VALSARTAN
     Indication: HYPERTENSION
     Route: 048
  12. DIOVAN [Concomitant]
     Active Substance: VALSARTAN
     Dosage: UNK
  13. AMBRISENTAN [Suspect]
     Active Substance: AMBRISENTAN
     Dosage: 7.5 MG, QD
     Route: 048
     Dates: start: 20121018, end: 20130206
  14. ADCIRCA [Concomitant]
     Active Substance: TADALAFIL
     Indication: PULMONARY ARTERIAL HYPERTENSION
     Route: 048
     Dates: start: 20130220
  15. CARELOAD LA [Concomitant]
     Active Substance: BERAPROST SODIUM
     Indication: PULMONARY ARTERIAL HYPERTENSION
     Dosage: UNK
     Dates: start: 20141031
  16. FLUITRAN [Concomitant]
     Active Substance: TRICHLORMETHIAZIDE
     Dosage: UNK
     Dates: start: 20150411
  17. ADCIRCA [Concomitant]
     Active Substance: TADALAFIL
     Dosage: UNK
     Dates: start: 20130220, end: 20161007
  18. DIOVAN [Concomitant]
     Active Substance: VALSARTAN
     Dosage: UNK
     Dates: end: 20141026
  19. CARELOAD LA [Concomitant]
     Active Substance: BERAPROST SODIUM
     Dosage: UNK
     Dates: start: 20141031, end: 20161007
  20. AMBRISENTAN [Suspect]
     Active Substance: AMBRISENTAN
     Indication: PULMONARY ARTERIAL HYPERTENSION
     Dosage: 5 MG, QD
     Route: 048
     Dates: start: 20120214, end: 20121017
  21. LONGES [Concomitant]
     Active Substance: LISINOPRIL
     Dosage: UNK

REACTIONS (6)
  - Pneumonia [Recovered/Resolved]
  - Cardiac failure [Recovering/Resolving]
  - Cardiac failure [Fatal]
  - Off label use [Recovered/Resolved]
  - Cardiac failure [Recovered/Resolved]
  - Fluid retention [Recovering/Resolving]

NARRATIVE: CASE EVENT DATE: 20121018
